FAERS Safety Report 5815127-7 (Version None)
Quarter: 2008Q3

REPORT INFORMATION
  Report Type: 
  Country: None (occurrence: None)
  Receive Date: 20080718
  Receipt Date: 20080716
  Transmission Date: 20090109
  Serious: Yes (Death)
  Sender: FDA-Public Use
  Company Number: FR-BRISTOL-MYERS SQUIBB COMPANY-14264667

PATIENT
  Age: 73 Year
  Sex: Female

DRUGS (18)
  1. ELISOR [Suspect]
     Dates: end: 20080616
  2. SUSTIVA [Suspect]
     Dates: end: 20080618
  3. TELZIR [Suspect]
     Dates: end: 20080618
  4. NORVIR [Suspect]
     Dates: end: 20080618
  5. POTASSIUM CHLORIDE [Suspect]
     Dates: end: 20080618
  6. LASIX [Suspect]
     Dates: start: 20080612, end: 20080615
  7. UN-ALFA [Suspect]
     Dates: start: 20080531, end: 20080618
  8. SODIUM BICARBONATE [Suspect]
     Dates: end: 20080618
  9. STABLON [Suspect]
     Dates: start: 20080613, end: 20080618
  10. FLAGYL [Concomitant]
     Dates: start: 20080528
  11. VALACYCLOVIR HCL [Concomitant]
  12. BACTRIM [Concomitant]
  13. EUCALCIC [Concomitant]
     Dosage: 1 DOSAGE FORM =  1.2G/15ML
     Dates: start: 20080528
  14. MOPRAL [Concomitant]
  15. LEVOTHYROX [Concomitant]
  16. CALCIPARINE [Concomitant]
     Dates: start: 20080615
  17. AVLOCARDYL [Concomitant]
  18. AZADOSE [Concomitant]
     Dates: start: 20080522

REACTIONS (2)
  - RESPIRATORY TRACT CONGESTION [None]
  - RHABDOMYOLYSIS [None]
